FAERS Safety Report 10232622 (Version 1)
Quarter: 2014Q2

REPORT INFORMATION
  Report Type: Spontaneous
  Country: US (occurrence: None)
  Receive Date: 20140611
  Receipt Date: 20140611
  Transmission Date: 20141212
  Serious: Yes (Disabling, Other)
  Sender: FDA-Public Use
  Company Number: None

PATIENT
  Age: 40 Year
  Sex: Male
  Weight: 95.26 kg

DRUGS (1)
  1. CIPRODEX [Suspect]
     Indication: EAR INFECTION
     Dosage: ONCE, DROPS, TWICE DAILY, INTO THE EAR

REACTIONS (4)
  - Ear pain [None]
  - Tinnitus [None]
  - Hypoacusis [None]
  - Vertigo [None]
